FAERS Safety Report 10209968 (Version 2)
Quarter: 2014Q2

REPORT INFORMATION
  Report Type: Spontaneous
  Country: NL (occurrence: NL)
  Receive Date: 20140602
  Receipt Date: 20140602
  Transmission Date: 20141212
  Serious: Yes (Other)
  Sender: FDA-Public Use
  Company Number: NL-AMGEN-NLDSP2014021444

PATIENT
  Age: 59 Year
  Sex: Female

DRUGS (2)
  1. XGEVA [Suspect]
     Indication: PRODUCT USED FOR UNKNOWN INDICATION
     Dosage: 1.7 ML (70 MG/ML),  Q4WK
     Route: 058
     Dates: start: 2013
  2. VITAMIN D                          /00107901/ [Concomitant]
     Dosage: UNK

REACTIONS (4)
  - Metastases to bone [Unknown]
  - Pain in jaw [Unknown]
  - Ear pain [Unknown]
  - Mastication disorder [Unknown]
